FAERS Safety Report 7349222-0 (Version None)
Quarter: 2011Q1

REPORT INFORMATION
  Report Type: 
  Country: None (occurrence: None)
  Receive Date: 20110314
  Receipt Date: 20110303
  Transmission Date: 20110831
  Serious: Yes (Other)
  Sender: FDA-Public Use
  Company Number: TH-PERRIGO-11TH001978

PATIENT
  Age: 4 Month

DRUGS (2)
  1. HYDROCORTISONE BUTYRATE [Suspect]
     Indication: DERMATITIS DIAPER
     Dosage: 8 TUBES IN 8 WEEKS
     Route: 061
  2. CLOBETASOL PROPIONATE [Suspect]
     Indication: DERMATITIS DIAPER
     Dosage: 6 TUBES IN 8 WEEKS
     Route: 061

REACTIONS (4)
  - INCORRECT DRUG ADMINISTRATION DURATION [None]
  - OFF LABEL USE [None]
  - OVERDOSE [None]
  - CUSHING'S SYNDROME [None]
